FAERS Safety Report 6084485-3 (Version None)
Quarter: 2009Q1

REPORT INFORMATION
  Report Type: 
  Country: None (occurrence: None)
  Receive Date: 20090219
  Receipt Date: 20090209
  Transmission Date: 20090719
  Serious: Yes (Life-Threatening, Hospitalization)
  Sender: FDA-Public Use
  Company Number: GB-ELI_LILLY_AND_COMPANY-GB200902002625

PATIENT
  Age: 34 Year
  Sex: Female

DRUGS (3)
  1. CYMBALTA [Suspect]
     Dosage: UNK, OVERDOSE
     Dates: start: 20090206
  2. ACETAMINOPHEN W/ CODEINE [Concomitant]
     Dosage: UNK, OVERDOSE
     Dates: start: 20090206
  3. AMITRIPTYLINE [Concomitant]
     Dosage: UNK, OVERDOSE
     Dates: start: 20090206

REACTIONS (2)
  - DYSPNOEA [None]
  - INTENTIONAL OVERDOSE [None]
